FAERS Safety Report 7048884-5 (Version None)
Quarter: 2010Q4

REPORT INFORMATION
  Report Type: 
  Country: None (occurrence: None)
  Receive Date: 20101018
  Receipt Date: 20101006
  Transmission Date: 20110411
  Serious: Yes (Death)
  Sender: FDA-Public Use
  Company Number: CA-ELI_LILLY_AND_COMPANY-CA201010001529

PATIENT
  Age: 90 Year
  Sex: Female

DRUGS (12)
  1. FORTEO [Suspect]
     Indication: OSTEOPOROSIS
     Dates: start: 20100817, end: 20101004
  2. VITAMIN D [Concomitant]
  3. VERAPAMIL [Concomitant]
  4. LASIX [Concomitant]
  5. METOPROLOL SUCCINATE [Concomitant]
  6. CALCIUM CARBONATE [Concomitant]
  7. ATACAND [Concomitant]
  8. VITALUX [Concomitant]
  9. SIMVASTATIN [Concomitant]
  10. WARFARIN SODIUM [Concomitant]
  11. DIGOXIN [Concomitant]
  12. AMLODIPINE [Concomitant]

REACTIONS (1)
  - DEATH [None]
